FAERS Safety Report 8985338 (Version 1)
Quarter: 2012Q4

REPORT INFORMATION
  Report Type: 
  Country: US (occurrence: US)
  Receive Date: 20121226
  Receipt Date: 20121226
  Transmission Date: 20130627
  Serious: Yes (Hospitalization)
  Sender: FDA-Public Use
  Company Number: PHEH2012US025170

PATIENT
  Sex: Female

DRUGS (6)
  1. EXELON PATCH [Suspect]
     Route: 062
  2. LISINOPRIL [Concomitant]
     Dosage: 10 mg, UNK
  3. ZOLOFT [Concomitant]
     Dosage: 100 mg, UNK
  4. MELATONIN [Concomitant]
  5. ASPIRIN [Concomitant]
     Dosage: 325 mg, UNK
  6. MULTIVITAMINS [Concomitant]

REACTIONS (1)
  - Sleep disorder [Unknown]
